FAERS Safety Report 8171669-3 (Version None)
Quarter: 2012Q1

REPORT INFORMATION
  Report Type: 
  Country: None (occurrence: None)
  Receive Date: 20120104
  Receipt Date: 20111207
  Transmission Date: 20120608
  Serious: No
  Sender: FDA-Public Use
  Company Number: 2011HGS-002758

PATIENT
  Age: 60 Year
  Sex: Female
  Weight: 60.3284 kg

DRUGS (13)
  1. PLAQENIL (HYDROXYCHLOROQUINE SULFATE) (HYDROXYCHLOROQUINE SULFATE) [Concomitant]
  2. CYMBALTA (ANTIDEPRESSANTS) (DULOXETINE) [Concomitant]
  3. AMBIEN [Concomitant]
  4. METHOTREXATE [Concomitant]
  5. LOVASTATIN [Concomitant]
  6. BENLYSTA [Suspect]
     Dosage: SEE IMAGE
     Route: 041
     Dates: start: 20111207
  7. BENLYSTA [Suspect]
     Dosage: SEE IMAGE
     Route: 041
     Dates: start: 20110826
  8. BENLYSTA [Suspect]
     Dosage: SEE IMAGE
     Route: 041
     Dates: start: 20111110
  9. BENLYSTA [Suspect]
     Dosage: SEE IMAGE
     Route: 041
     Dates: start: 20110809
  10. BENLYSTA [Suspect]
     Dosage: SEE IMAGE
     Route: 041
     Dates: start: 20110909
  11. TRAZODONE (TRAZODONE) (TRAZODONE) [Concomitant]
  12. ASPIRIN [Concomitant]
  13. SYNTHROID (LEVOTHYROXINE SODIUM) (LEVOTHYROXINE SODIUM) [Concomitant]

REACTIONS (2)
  - SWOLLEN TONGUE [None]
  - STOMATITIS [None]
